FAERS Safety Report 5497282-4 (Version None)
Quarter: 2007Q4

REPORT INFORMATION
  Report Type: 
  Country: None (occurrence: None)
  Receive Date: 20071025
  Receipt Date: 20071017
  Transmission Date: 20080405
  Serious: Yes (Death)
  Sender: FDA-Public Use
  Company Number: US-ROCHE-526220

PATIENT
  Age: 51 Year

DRUGS (3)
  1. DIAZEPAM [Suspect]
     Indication: DRUG USE FOR UNKNOWN INDICATION
     Dosage: ACUTE EXPOSURE.
     Route: 048
  2. MORPHINE [Suspect]
     Indication: DRUG USE FOR UNKNOWN INDICATION
     Dosage: ACUTE EXPOSURE.
     Route: 048
  3. TRICYCLIC ANTIDEPRESSANT NOS [Suspect]
     Indication: DRUG USE FOR UNKNOWN INDICATION
     Dosage: ACUTE EXPOSURE.
     Route: 048

REACTIONS (1)
  - COMPLETED SUICIDE [None]
